FAERS Safety Report 19835665 (Version 1)
Quarter: 2021Q3

REPORT INFORMATION
  Report Type: Spontaneous
  Country: CN (occurrence: CN)
  Receive Date: 20210915
  Receipt Date: 20210915
  Transmission Date: 20211014
  Serious: Yes (Hospitalization)
  Sender: FDA-Public Use
  Company Number: CN-ASTRAZENECA-2021A721708

PATIENT
  Age: 59 Year
  Sex: Male

DRUGS (1)
  1. TAGRISSO [Suspect]
     Active Substance: OSIMERTINIB
     Indication: LUNG NEOPLASM MALIGNANT
     Dosage: UNKNOWN
     Route: 048
     Dates: start: 202103

REACTIONS (6)
  - Headache [Recovered/Resolved]
  - Hypoaesthesia [Unknown]
  - Diarrhoea [Unknown]
  - Lung disorder [Unknown]
  - Rash vesicular [Unknown]
  - Rash [Unknown]

NARRATIVE: CASE EVENT DATE: 202106
